FAERS Safety Report 7718534-0 (Version None)
Quarter: 2011Q3

REPORT INFORMATION
  Report Type: 
  Country: None (occurrence: None)
  Receive Date: 20110824
  Receipt Date: 20110818
  Transmission Date: 20111222
  Serious: Yes (Hospitalization)
  Sender: FDA-Public Use
  Company Number: 2011SP039300

PATIENT
  Age: 44 Year
  Sex: Female
  Weight: 53 kg

DRUGS (7)
  1. KYTRIL [Concomitant]
  2. DEPAKENE [Concomitant]
  3. MUCOSTA [Concomitant]
  4. COTRIM [Concomitant]
  5. TEMODAL [Suspect]
     Indication: ANAPLASTIC ASTROCYTOMA
     Dosage: 75 MG/M2;QD;PO, 150 MG/M2;QD;PO, 200 MG/M2;QD;PO
     Route: 048
     Dates: start: 20070305, end: 20070415
  6. TEMODAL [Suspect]
     Indication: ANAPLASTIC ASTROCYTOMA
     Dosage: 75 MG/M2;QD;PO, 150 MG/M2;QD;PO, 200 MG/M2;QD;PO
     Route: 048
     Dates: start: 20070514, end: 20080111
  7. TEMODAL [Suspect]
     Indication: ANAPLASTIC ASTROCYTOMA
     Dosage: 75 MG/M2;QD;PO, 150 MG/M2;QD;PO, 200 MG/M2;QD;PO
     Route: 048
     Dates: start: 20080204, end: 20100622

REACTIONS (1)
  - RHABDOMYOLYSIS [None]
